FAERS Safety Report 26193753 (Version 1)
Quarter: 2025Q4

REPORT INFORMATION
  Report Type: Spontaneous
  Country: US (occurrence: US)
  Receive Date: 20251224
  Receipt Date: 20251224
  Transmission Date: 20260118
  Serious: Yes (Hospitalization)
  Sender: SANOFI AVENTIS
  Company Number: US-SA-2025SA381549

PATIENT
  Age: 92 Year
  Sex: Female

DRUGS (6)
  1. DUPIXENT [Suspect]
     Active Substance: DUPILUMAB
     Indication: Dermatitis atopic
     Dosage: 300 MG, QOW
     Route: 058
     Dates: start: 20221101
  2. PRILOSEC [Concomitant]
     Active Substance: OMEPRAZOLE MAGNESIUM
  3. PEPCID [Concomitant]
     Active Substance: FAMOTIDINE
  4. POTASSIUM [Concomitant]
     Active Substance: POTASSIUM
  5. MAGNESIUM [Concomitant]
     Active Substance: MAGNESIUM
  6. CELEXA [Concomitant]
     Active Substance: CITALOPRAM HYDROBROMIDE

REACTIONS (1)
  - Haematological infection [Unknown]

NARRATIVE: CASE EVENT DATE: 20251219
